FAERS Safety Report 18101553 (Version 1)
Quarter: 2020Q3

REPORT INFORMATION
  Report Type: Spontaneous
  Country: US (occurrence: US)
  Receive Date: 20200801
  Receipt Date: 20200801
  Transmission Date: 20201103
  Serious: Yes (Other)
  Sender: FDA-Public Use
  Company Number: US-TEVA-2020-US-1808828

PATIENT
  Sex: Female

DRUGS (3)
  1. OXYCONTIN [Suspect]
     Active Substance: OXYCODONE HYDROCHLORIDE
     Route: 065
  2. OXYCODONE [Suspect]
     Active Substance: OXYCODONE
     Route: 065
  3. FENTANYL TRANSDERMAL SYSTEM [Suspect]
     Active Substance: FENTANYL
     Route: 065

REACTIONS (7)
  - Cerebrovascular accident [Unknown]
  - Memory impairment [Unknown]
  - Intracranial aneurysm [Unknown]
  - Hepatic failure [Unknown]
  - Near death experience [Unknown]
  - Staphylococcal infection [Unknown]
  - Nephrectomy [Unknown]
